FAERS Safety Report 10067741 (Version 1)
Quarter: 2014Q2

REPORT INFORMATION
  Report Type: Report from Study
  Country: US (occurrence: US)
  Receive Date: 20140409
  Receipt Date: 20140409
  Transmission Date: 20141212
  Serious: No
  Sender: FDA-Public Use
  Company Number: PHEH2014US006679

PATIENT
  Sex: Male

DRUGS (15)
  1. TASIGNA [Suspect]
     Indication: CHRONIC MYELOID LEUKAEMIA
     Dosage: 400 MG, BID
     Dates: start: 20121019
  2. TASIGNA [Suspect]
     Dosage: 400 MG, BID
  3. PROTONIX [Concomitant]
  4. NORVASC [Concomitant]
  5. BENAZEPRIL [Concomitant]
  6. METOPROLOL [Concomitant]
  7. AMLODIPINE [Concomitant]
  8. PANTOPRAZOLE [Concomitant]
  9. HYDROCODONE [Concomitant]
  10. ACETAMINOPHEN [Concomitant]
  11. ALPRAZOLAM [Concomitant]
  12. MELOXICAM [Concomitant]
  13. METHYLPREDNISOLONE [Concomitant]
  14. IPRATROPIUM [Concomitant]
  15. CYCLOBENZAPRINE [Concomitant]

REACTIONS (1)
  - Inflammation [Unknown]
